FAERS Safety Report 7327128-0 (Version None)
Quarter: 2011Q1

REPORT INFORMATION
  Report Type: 
  Country: None (occurrence: None)
  Receive Date: 20110302
  Receipt Date: 20110215
  Transmission Date: 20110831
  Serious: Yes (Death, Other)
  Sender: FDA-Public Use
  Company Number: DE-GENENTECH-314119

PATIENT
  Sex: Female

DRUGS (2)
  1. LUCENTIS [Suspect]
     Dosage: UNK
     Route: 031
     Dates: start: 20101209
  2. LUCENTIS [Suspect]
     Indication: MACULAR DEGENERATION
     Dosage: UNK
     Route: 031
     Dates: start: 20101014

REACTIONS (5)
  - MYOCARDIAL ISCHAEMIA [None]
  - DISTURBANCE IN ATTENTION [None]
  - CORONARY ARTERY DISEASE [None]
  - TACHYARRHYTHMIA [None]
  - CEREBRAL INFARCTION [None]
